FAERS Safety Report 9017425 (Version 1)
Quarter: 2013Q1

REPORT INFORMATION
  Report Type: Spontaneous
  Country: JP (occurrence: JP)
  Receive Date: 20130117
  Receipt Date: 20130117
  Transmission Date: 20140127
  Serious: Yes (Death)
  Sender: FDA-Public Use
  Company Number: JP-BRISTOL-MYERS SQUIBB COMPANY-17274457

PATIENT
  Age: 80 Year
  Sex: Male

DRUGS (1)
  1. HYDREA [Suspect]
     Indication: THROMBOCYTOSIS
     Route: 048

REACTIONS (1)
  - Hepatitis [Fatal]
